FAERS Safety Report 22949962 (Version 4)
Quarter: 2023Q4

REPORT INFORMATION
  Report Type: Report from Study
  Country: BD (occurrence: BD)
  Receive Date: 20230915
  Receipt Date: 20231214
  Transmission Date: 20240109
  Serious: Yes (Hospitalization, Other)
  Sender: FDA-Public Use
  Company Number: BD-002147023-NVSC2023BD197751

PATIENT
  Age: 75 Year
  Sex: Male

DRUGS (1)
  1. ENTRESTO [Suspect]
     Active Substance: SACUBITRIL\VALSARTAN
     Indication: Cardiac failure chronic
     Dosage: UNK
     Route: 065

REACTIONS (10)
  - Dyspnoea [Recovering/Resolving]
  - Condition aggravated [Unknown]
  - Diabetes mellitus [Unknown]
  - Malaise [Recovering/Resolving]
  - Feeding disorder [Unknown]
  - Chest pain [Unknown]
  - Cardiac disorder [Unknown]
  - Nasopharyngitis [Unknown]
  - Asthenia [Unknown]
  - Wrong technique in product usage process [Unknown]
